FAERS Safety Report 5898965-4 (Version None)
Quarter: 2008Q3

REPORT INFORMATION
  Report Type: 
  Country: None (occurrence: None)
  Receive Date: 20080925
  Receipt Date: 20080918
  Transmission Date: 20090109
  Serious: Yes (Other)
  Sender: FDA-Public Use
  Company Number: CN-PFIZER INC-2008079153

PATIENT
  Age: 80 Year
  Sex: Male

DRUGS (1)
  1. NORVASC [Suspect]
     Route: 048
     Dates: start: 20070101

REACTIONS (1)
  - HAEMATOCHEZIA [None]
